FAERS Safety Report 8119775-3 (Version None)
Quarter: 2011Q4

REPORT INFORMATION
  Report Type: 
  Country: None (occurrence: None)
  Receive Date: 20111227
  Receipt Date: 20111001
  Transmission Date: 20120403
  Serious: No
  Sender: FDA-Public Use
  Company Number: PHEH2011US05436

PATIENT
  Age: 33 Year
  Sex: Female
  Weight: 56.7 kg

DRUGS (1)
  1. GILENYA [Suspect]
     Indication: MULTIPLE SCLEROSIS
     Dosage: 0.5 MG, QD, ORAL
     Route: 048
     Dates: start: 20110926

REACTIONS (11)
  - MOOD ALTERED [None]
  - GASTROINTESTINAL DISORDER [None]
  - MIDDLE INSOMNIA [None]
  - MUSCULOSKELETAL STIFFNESS [None]
  - DIZZINESS [None]
  - FEELING ABNORMAL [None]
  - DIPLOPIA [None]
  - PAIN [None]
  - VISION BLURRED [None]
  - HEADACHE [None]
  - DYSPNOEA [None]
